FAERS Safety Report 23494423 (Version 1)
Quarter: 2024Q1

REPORT INFORMATION
  Report Type: Spontaneous
  Country: US (occurrence: None)
  Receive Date: 20240207
  Receipt Date: 20240207
  Transmission Date: 20240410
  Serious: Yes (Hospitalization)
  Sender: FDA-Public Use
  Company Number: None

PATIENT
  Sex: Female

DRUGS (19)
  1. GLATIRAMER [Suspect]
     Active Substance: GLATIRAMER
     Indication: Multiple sclerosis
     Dosage: 20 MG/ML SUBCUTANEOUS??INJECT 20 MG UNDER THE SKIN DAILY
     Route: 058
     Dates: start: 20190228
  2. ALBUTEROL AER HFA [Concomitant]
  3. ASPIRIN TAB 81MG [Concomitant]
  4. BACLOFEN [Concomitant]
  5. CELEXA TAB 20MG [Concomitant]
  6. CENTRUM TAB SILVER [Concomitant]
  7. CICLOPIROX CRE 0.77% [Concomitant]
  8. CITALOPRAM TAB 20MG [Concomitant]
  9. CLONAZEPAM TAB 1MG [Concomitant]
  10. DEPAKOTE ER TAB 500MG [Concomitant]
  11. DIVALPROEX TAB 250MG ER [Concomitant]
  12. ERYTHROMYCIN OIN 5MG/GM [Concomitant]
  13. FLUTICASONE SPR 50MCG [Concomitant]
  14. KLONOPIN TAB 1MG [Concomitant]
  15. PROMETH/COD SOL 6.25-10 [Concomitant]
  16. ROSUVASTATIN TAB 20MG [Concomitant]
  17. TOBRAMYCIN SOL 0.3 OP [Concomitant]
  18. VITAMIN C TAB 500MG [Concomitant]
  19. VITAMIN D3 CAP 2000 UNIT [Concomitant]

REACTIONS (1)
  - Renal cancer [None]
